FAERS Safety Report 8534009 (Version 4)
Quarter: 2012Q4

REPORT INFORMATION
  Report Type: Report from Study
  Country: US (occurrence: US)
  Receive Date: 20120427
  Receipt Date: 20120920
  Transmission Date: 20130627
  Serious: Yes (Life-Threatening, Other)
  Sender: FDA-Public Use
  Company Number: US-JNJFOC-20120410009

PATIENT
  Age: 49 Year
  Sex: Female
  Weight: 108.86 kg

DRUGS (1)
  1. GOLIMUMAB [Suspect]
     Indication: PSORIASIS
     Route: 058
     Dates: start: 201103

REACTIONS (1)
  - Cellulitis [Recovered/Resolved]
